FAERS Safety Report 8358518-5 (Version None)
Quarter: 2012Q2

REPORT INFORMATION
  Report Type: 
  Country: None (occurrence: None)
  Receive Date: 20120514
  Receipt Date: 20120509
  Transmission Date: 20120825
  Serious: Yes (Hospitalization)
  Sender: FDA-Public Use
  Company Number: AU-AMGEN-AUSSP2012029001

PATIENT
  Age: 47 Year
  Sex: Female

DRUGS (3)
  1. CYCLOPHOSPHAMIDE [Concomitant]
     Indication: BREAST CANCER
  2. NEULASTA [Suspect]
     Indication: CHEMOTHERAPY
  3. DOCETAXEL [Concomitant]
     Indication: BREAST CANCER

REACTIONS (4)
  - NEUTROPENIA [None]
  - MUSCLE SPASMS [None]
  - BONE PAIN [None]
  - ABDOMINAL PAIN [None]
